FAERS Safety Report 6695416-7 (Version None)
Quarter: 2010Q2

REPORT INFORMATION
  Report Type: 
  Country: None (occurrence: None)
  Receive Date: 20100424
  Receipt Date: 20100413
  Transmission Date: 20101027
  Serious: Yes (Hospitalization, Other)
  Sender: FDA-Public Use
  Company Number: US-ELI_LILLY_AND_COMPANY-US201001005584

PATIENT
  Sex: Female

DRUGS (6)
  1. CYMBALTA [Suspect]
     Indication: DEPRESSION
     Dosage: 90 MG, DAILY (1/D)
     Dates: end: 20100101
  2. CONCERTA [Concomitant]
     Indication: FATIGUE
  3. SYNTHROID [Concomitant]
     Indication: HYPOTHYROIDISM
  4. ACIPHEX [Concomitant]
  5. ALLEGRA [Concomitant]
  6. PRILOSEC [Concomitant]
     Indication: GASTROOESOPHAGEAL REFLUX DISEASE

REACTIONS (2)
  - INTESTINAL PERFORATION [None]
  - SMALL INTESTINAL OBSTRUCTION [None]
